FAERS Safety Report 19555585 (Version 2)
Quarter: 2021Q3

REPORT INFORMATION
  Report Type: Report from Study
  Country: BW (occurrence: BW)
  Receive Date: 20210714
  Receipt Date: 20210719
  Transmission Date: 20211014
  Serious: Yes (Other)
  Sender: FDA-Public Use
  Company Number: US-GLAXOSMITHKLINE-US2021GSK151182

PATIENT
  Age: 45 Year
  Sex: Male

DRUGS (6)
  1. DARUNAVIR + RITONAVIR [Suspect]
     Active Substance: DARUNAVIR\RITONAVIR
     Indication: HIV INFECTION
     Dosage: UNK UNK, BID
  2. DOLUTEGRAVIR [Suspect]
     Active Substance: DOLUTEGRAVIR
     Indication: HIV INFECTION
     Dosage: UNK
     Dates: start: 20040519
  3. DOLUTEGRAVIR [Suspect]
     Active Substance: DOLUTEGRAVIR
     Dosage: 50 MG, BID
  4. LAMIVUDINE HIV [Suspect]
     Active Substance: LAMIVUDINE
     Indication: HIV INFECTION
     Dosage: UNK
     Dates: start: 20040519
  5. ZIDOVUDINE. [Suspect]
     Active Substance: ZIDOVUDINE
     Indication: HIV INFECTION
     Dosage: UNK
     Dates: start: 20040519
  6. EMTRICITABINE + TENOFOVIR DISOPROXIL [Suspect]
     Active Substance: EMTRICITABINE\TENOFOVIR DISOPROXIL FUMARATE
     Indication: HIV INFECTION
     Dosage: UNK UNK, QD

REACTIONS (3)
  - Pathogen resistance [Unknown]
  - Viral mutation identified [Unknown]
  - Virologic failure [Not Recovered/Not Resolved]
